FAERS Safety Report 8956314 (Version 1)
Quarter: 2012Q4

REPORT INFORMATION
  Report Type: 
  Country: JP (occurrence: JP)
  Receive Date: 20121210
  Receipt Date: 20121210
  Transmission Date: 20130627
  Serious: Yes (Hospitalization)
  Sender: FDA-Public Use
  Company Number: JP-ASTRAZENECA-2012SE89578

PATIENT
  Age: 63 Year
  Sex: Female

DRUGS (7)
  1. SYMBICORT TURBUHALER [Suspect]
     Indication: ASTHMA
     Dosage: Dose unknown
     Route: 055
  2. GENINAX [Suspect]
     Route: 048
     Dates: start: 20121106
  3. THEODUR [Concomitant]
     Indication: INFLAMMATION
     Route: 048
  4. THEODUR [Concomitant]
     Indication: NASAL CONGESTION
     Route: 048
  5. MUCODYNE [Concomitant]
     Route: 048
  6. EPHEDRIN [Concomitant]
     Route: 048
  7. CODEINE [Concomitant]
     Route: 048

REACTIONS (1)
  - Syncope [Recovered/Resolved]
